FAERS Safety Report 8488751-3 (Version None)
Quarter: 2012Q2

REPORT INFORMATION
  Report Type: 
  Country: None (occurrence: None)
  Receive Date: 20120626
  Receipt Date: 20120613
  Transmission Date: 20120825
  Serious: Yes (Hospitalization)
  Sender: FDA-Public Use
  Company Number: DSU-2012-04823

PATIENT
  Age: 63 Year
  Sex: Female
  Weight: 65.7716 kg

DRUGS (5)
  1. BENICAR [Suspect]
     Indication: HYPERTENSION
     Dosage: PER ORAL ; PER ORAL
     Route: 048
     Dates: start: 20120401, end: 20120501
  2. BENICAR [Suspect]
     Indication: HYPERTENSION
     Dosage: PER ORAL ; PER ORAL
     Route: 048
     Dates: start: 20090101
  3. METOPROLOL SUCCINATE [Concomitant]
  4. TRIBENZOR [Suspect]
     Indication: HYPERTENSION
     Dosage: 40/5/12.5MG (QD),PER ORAL ; PER ORAL
     Route: 048
     Dates: end: 20120401
  5. TRIBENZOR [Suspect]
     Indication: HYPERTENSION
     Dosage: 40/5/12.5MG (QD),PER ORAL ; PER ORAL
     Route: 048
     Dates: start: 20120501

REACTIONS (5)
  - FLUID RETENTION [None]
  - JOINT SWELLING [None]
  - OEDEMA PERIPHERAL [None]
  - THYROID NEOPLASM [None]
  - EYE SWELLING [None]
